FAERS Safety Report 7324599-0 (Version None)
Quarter: 2011Q1

REPORT INFORMATION
  Report Type: 
  Country: None (occurrence: None)
  Receive Date: 20110301
  Receipt Date: 20110216
  Transmission Date: 20110831
  Serious: Yes (Life-Threatening)
  Sender: FDA-Public Use
  Company Number: IT-CELGENEUS-083-C5013-10050854

PATIENT
  Sex: Male
  Weight: 75 kg

DRUGS (6)
  1. VALGANCICLOVIR [Concomitant]
     Indication: INFECTION PROPHYLAXIS
     Dosage: 1000 MILLIGRAM
     Route: 048
     Dates: start: 20090617, end: 20100830
  2. POTASSIUM CHLORIDE [Concomitant]
     Indication: HYPOKALAEMIA
     Dosage: 1800 MILLIGRAM
     Route: 048
     Dates: start: 20100409, end: 20100505
  3. CC-5013\PLACEBO [Suspect]
     Route: 048
     Dates: start: 20100504, end: 20100507
  4. ALLOPURINOL [Concomitant]
     Indication: PROPHYLAXIS
     Dosage: 300 MILLIGRAM
     Route: 048
     Dates: start: 20100403, end: 20100506
  5. FLUCONAZOLE [Concomitant]
     Indication: INFECTION PROPHYLAXIS
     Dosage: 200 MILLIGRAM
     Route: 048
     Dates: start: 20100409, end: 20100623
  6. CC-5013\PLACEBO [Suspect]
     Dosage: 25 MILLIGRAM
     Route: 048
     Dates: start: 20100406

REACTIONS (1)
  - HAEMOLYTIC ANAEMIA [None]
